FAERS Safety Report 8757477 (Version 1)
Quarter: 2012Q4

REPORT INFORMATION
  Report Type: 
  Country: US (occurrence: US)
  Receive Date: 20120828
  Receipt Date: 20120828
  Transmission Date: 20130627
  Serious: Yes (Hospitalization)
  Sender: FDA-Public Use
  Company Number: US-BAYER-2012-087365

PATIENT
  Age: 16 Year
  Sex: Female
  Weight: 84.81 kg

DRUGS (5)
  1. YASMIN [Suspect]
     Indication: CONTRACEPTION
  2. OCELLA [Suspect]
     Indication: CONTRACEPTION
  3. ZOLOFT [Concomitant]
     Indication: ANXIETY
     Dosage: 50 mg, UNK
  4. NEXIUM [Concomitant]
     Dosage: 40 mg, UNK
  5. AZITHROMYCIN [Concomitant]
     Dosage: 250 mg, UNK

REACTIONS (1)
  - Cerebrovascular accident [None]
